FAERS Safety Report 7628866-2 (Version None)
Quarter: 2011Q3

REPORT INFORMATION
  Report Type: 
  Country: None (occurrence: None)
  Receive Date: 20110722
  Receipt Date: 20110503
  Transmission Date: 20111222
  Serious: No
  Sender: FDA-Public Use
  Company Number: US-MYLANLABS-2011S1009128

PATIENT
  Age: 55 Year
  Sex: Female
  Weight: 90.72 kg

DRUGS (2)
  1. DEMADEX [Concomitant]
  2. LIOTHYRONINE SODIUM [Suspect]
     Indication: HYPOTHYROIDISM
     Route: 048
     Dates: start: 20110301

REACTIONS (6)
  - ASTHENIA [None]
  - DYSPNOEA [None]
  - OEDEMA [None]
  - INCREASED APPETITE [None]
  - IRRITABILITY [None]
  - INSOMNIA [None]
